FAERS Safety Report 11080073 (Version 2)
Quarter: 2015Q2

REPORT INFORMATION
  Report Type: Spontaneous
  Country: US (occurrence: US)
  Receive Date: 20150430
  Receipt Date: 20150507
  Transmission Date: 20150821
  Serious: Yes (Hospitalization)
  Sender: FDA-Public Use
  Company Number: US-LPDUSPRD-20150279

PATIENT
  Age: 42 Year
  Sex: Female

DRUGS (3)
  1. FEOSTAT [Concomitant]
     Dosage: 5000 UNITS DAILY
     Route: 048
  2. VENOFER [Suspect]
     Active Substance: IRON SUCROSE
     Indication: IRON DEFICIENCY ANAEMIA
     Dosage: DOSE NOT PROVIDED
     Route: 042
  3. MELATONIN [Concomitant]
     Active Substance: MELATONIN
     Indication: SLEEP DISORDER
     Dosage: DOSE NOT PROVIDED
     Route: 065

REACTIONS (14)
  - Headache [Recovered/Resolved]
  - Irritability [Recovered/Resolved]
  - Drug ineffective [Unknown]
  - Limb discomfort [Recovered/Resolved]
  - Hypersensitivity [Unknown]
  - Dysgeusia [Recovered/Resolved]
  - Renal failure [Recovered/Resolved]
  - Laboratory test abnormal [Not Recovered/Not Resolved]
  - Injection site extravasation [Recovered/Resolved]
  - Injection site bruising [Recovered/Resolved]
  - Constipation [Unknown]
  - Off label use [Unknown]
  - Abdominal discomfort [Recovered/Resolved]
  - Pain [Recovered/Resolved]
